FAERS Safety Report 25821606 (Version 1)
Quarter: 2025Q3

REPORT INFORMATION
  Report Type: Spontaneous
  Country: US (occurrence: US)
  Receive Date: 20250919
  Receipt Date: 20250919
  Transmission Date: 20251020
  Serious: Yes (Other)
  Sender: RANBAXY
  Company Number: US-SUN PHARMACEUTICAL INDUSTRIES LTD-2025R1-521459

PATIENT
  Sex: Male

DRUGS (1)
  1. LISDEXAMFETAMINE [Suspect]
     Active Substance: LISDEXAMFETAMINE
     Indication: Product used for unknown indication
     Route: 065
     Dates: start: 202501

REACTIONS (5)
  - Self-injurious ideation [Unknown]
  - Drug ineffective [Unknown]
  - Product substitution issue [Unknown]
  - Product dose omission in error [Unknown]
  - Social problem [Unknown]

NARRATIVE: CASE EVENT DATE: 20250101
